FAERS Safety Report 15515101 (Version 1)
Quarter: 2018Q4

REPORT INFORMATION
  Report Type: Spontaneous
  Country: LB (occurrence: LB)
  Receive Date: 20181017
  Receipt Date: 20181017
  Transmission Date: 20190205
  Serious: Yes (Other)
  Sender: FDA-Public Use
  Company Number: LB-SUN PHARMACEUTICAL INDUSTRIES LTD-2018RR-187822

PATIENT
  Age: 69 Year
  Sex: Female

DRUGS (10)
  1. ZOLPIDEM [Suspect]
     Active Substance: ZOLPIDEM\ZOLPIDEM TARTRATE
     Indication: PROGRESSIVE SUPRANUCLEAR PALSY
     Dosage: 5 MG, DAILY
     Route: 048
  2. MIRTAZAPINE. [Suspect]
     Active Substance: MIRTAZAPINE
     Indication: PROGRESSIVE SUPRANUCLEAR PALSY
     Dosage: 30 MG, DAILY
     Route: 048
  3. VENLAFAXINE [Suspect]
     Active Substance: VENLAFAXINE HYDROCHLORIDE
     Indication: PROGRESSIVE SUPRANUCLEAR PALSY
     Dosage: 75 MG, DAILY
     Route: 048
  4. PROPOFOL. [Suspect]
     Active Substance: PROPOFOL
     Indication: SEDATION
     Dosage: 10 MG, INTERMITTENT BOLUSES, TOTAL OF 40 MG
     Route: 040
  5. ROPIVACAINE. [Suspect]
     Active Substance: ROPIVACAINE HYDROCHLORIDE
     Indication: ANAESTHESIA
     Dosage: 0.375%
     Route: 042
  6. SUFENTANIL [Suspect]
     Active Substance: SUFENTANIL
     Indication: SPINAL ANAESTHESIA
     Dosage: 2.5 UG
     Route: 042
  7. BACLOFEN. [Suspect]
     Active Substance: BACLOFEN
     Indication: PROGRESSIVE SUPRANUCLEAR PALSY
     Dosage: 5 MG, Q8H
     Route: 048
  8. CARBIDOPA AND LEVODOPA [Suspect]
     Active Substance: CARBIDOPA\LEVODOPA
     Indication: PROGRESSIVE SUPRANUCLEAR PALSY
     Dosage: 25 MG/100 MG Q8H
     Route: 048
  9. TIZANIDINE. [Suspect]
     Active Substance: TIZANIDINE
     Indication: PROGRESSIVE SUPRANUCLEAR PALSY
     Dosage: 2 MG, Q8H
     Route: 048
  10. BUPIVACAINE. [Suspect]
     Active Substance: BUPIVACAINE
     Indication: SPINAL ANAESTHESIA
     Dosage: 7 MG, UNK
     Route: 042

REACTIONS (2)
  - Hypotension [Unknown]
  - Drug interaction [Unknown]
